FAERS Safety Report 12261692 (Version 1)
Quarter: 2016Q2

REPORT INFORMATION
  Report Type: Spontaneous
  Country: US (occurrence: None)
  Receive Date: 20160412
  Receipt Date: 20160412
  Transmission Date: 20160815
  Serious: Yes (Hospitalization)
  Sender: FDA-Public Use
  Company Number: None

PATIENT
  Age: 79 Year
  Sex: Male
  Weight: 72.8 kg

DRUGS (18)
  1. COUMADIN [Concomitant]
     Active Substance: WARFARIN SODIUM
  2. EASY TOUCH LANCETS [Concomitant]
  3. WARFARIN (JANTOVEN) [Concomitant]
  4. KLOR-CON [Concomitant]
     Active Substance: POTASSIUM CHLORIDE
  5. METFORMIN (GLUCOPHAGE) [Concomitant]
  6. VITAMIN B COMPLEX [Concomitant]
     Active Substance: CYANOCOBALAMIN\DEXPANTHENOL\NIACINAMIDE\PYRIDOXINE HYDROCHLORIDE\RIBOFLAVIN 5^-PHOSPHATE SODIUM\THIAMINE HYDROCHLORIDE\VITAMIN B COMPLEX
  7. METOPROLOL (TOPROL-XL) [Concomitant]
  8. NITROGLYCERIN (NITROSTAT) [Concomitant]
  9. ASCORBIC ACID (VITAMIN C) [Concomitant]
     Active Substance: ASCORBIC ACID
  10. LANCETS [Concomitant]
     Active Substance: DEVICE
  11. BLOOD GLUCOSE MONITORING SUPPL (BLOOD GLUCOSE METER) KIT [Concomitant]
  12. LANOXIN [Concomitant]
     Active Substance: DIGOXIN
  13. WARFARIN, 2.5MG [Suspect]
     Active Substance: WARFARIN
     Indication: ATRIAL FIBRILLATION
     Dosage: 2.5 MG VARIES ORAL
     Route: 048
  14. LASIX [Concomitant]
     Active Substance: FUROSEMIDE
  15. MULTIVITAMINS-MINERALS (THERAGRAN-M) [Concomitant]
  16. TRUETRACK TEST STRIP [Concomitant]
  17. AMBIEN [Concomitant]
     Active Substance: ZOLPIDEM TARTRATE
  18. LORATADINE (CLARITIN) [Concomitant]

REACTIONS (5)
  - Fall [None]
  - Head injury [None]
  - Decreased appetite [None]
  - Subdural haematoma [None]
  - International normalised ratio decreased [None]

NARRATIVE: CASE EVENT DATE: 20160208
